FAERS Safety Report 17353376 (Version 1)
Quarter: 2020Q1

REPORT INFORMATION
  Report Type: Spontaneous
  Country: US (occurrence: US)
  Receive Date: 20200131
  Receipt Date: 20200131
  Transmission Date: 20200409
  Serious: No
  Sender: FDA-Public Use
  Company Number: US-GW PHARMA-202001USGW00319

PATIENT

DRUGS (1)
  1. EPIDIOLEX [Suspect]
     Active Substance: CANNABIDIOL
     Indication: SEIZURE
     Dosage: 700 MILLIGRAM, QD (500MG IN AM AND 200 MG IN PM)
     Route: 048
     Dates: start: 20191003

REACTIONS (1)
  - Insomnia [Not Recovered/Not Resolved]
